FAERS Safety Report 6350623-8 (Version None)
Quarter: 2009Q3

REPORT INFORMATION
  Report Type: 
  Country: None (occurrence: None)
  Receive Date: 20090911
  Receipt Date: 20090622
  Transmission Date: 20100115
  Serious: No
  Sender: FDA-Public Use
  Company Number: US-ABBOTT-07P-163-0366839-00

PATIENT
  Sex: Female
  Weight: 90.8 kg

DRUGS (3)
  1. HUMIRA [Suspect]
     Indication: CROHN'S DISEASE
     Dosage: 40MG X 4
     Route: 058
     Dates: start: 20070416, end: 20070416
  2. HUMIRA [Suspect]
     Dosage: 40MG X 2
     Route: 058
     Dates: start: 20070430, end: 20070430
  3. HUMIRA [Suspect]
     Route: 058

REACTIONS (2)
  - INCORRECT DOSE ADMINISTERED [None]
  - INJECTION SITE IRRITATION [None]
